FAERS Safety Report 4574891-8 (Version None)
Quarter: 2005Q1

REPORT INFORMATION
  Report Type: 
  Country: None (occurrence: None)
  Receive Date: 20050208
  Receipt Date: 20040728
  Transmission Date: 20050727
  Serious: No
  Sender: FDA-Public Use
  Company Number: US-GLAXOSMITHKLINE-A0520096A

PATIENT
  Age: 31 Year
  Sex: Male

DRUGS (2)
  1. PAXIL CR [Suspect]
     Indication: ILL-DEFINED DISORDER
     Dosage: 25MG PER DAY
     Route: 048
     Dates: start: 20030601, end: 20040401
  2. NO CONCURRENT MEDICATION [Concomitant]

REACTIONS (4)
  - CONSTIPATION [None]
  - DIZZINESS [None]
  - DRUG WITHDRAWAL SYNDROME [None]
  - LIBIDO DECREASED [None]
